FAERS Safety Report 9347150 (Version 6)
Quarter: 2020Q1

REPORT INFORMATION
  Report Type: Report from Study
  Country: NO (occurrence: NO)
  Receive Date: 20130613
  Receipt Date: 20200205
  Transmission Date: 20200409
  Serious: Yes (Death, Hospitalization, Other)
  Sender: FDA-Public Use
  Company Number: NO-SANOFI-AVENTIS-2013SA056555

PATIENT
  Age: 58 Year
  Sex: Female

DRUGS (8)
  1. DEXAMETHASONE. [Concomitant]
     Active Substance: DEXAMETHASONE
     Dosage: 12 MG,QD
     Route: 042
  2. ONDANSETRON [Concomitant]
     Active Substance: ONDANSETRON
     Dosage: UNK
     Route: 065
  3. DOCETAXEL. [Suspect]
     Active Substance: DOCETAXEL
     Dosage: 190 MG,1X
     Route: 042
     Dates: start: 20120620, end: 20120620
  4. NEULASTA [Concomitant]
     Active Substance: PEGFILGRASTIM
     Indication: BONE MARROW CONDITIONING REGIMEN
     Dosage: 6 MG,QOW
     Route: 058
  5. DOCETAXEL. [Suspect]
     Active Substance: DOCETAXEL
     Dosage: 190 MG,1X
     Route: 042
     Dates: start: 20120704, end: 20120704
  6. APREPITANT. [Concomitant]
     Active Substance: APREPITANT
     Dosage: UNK
     Route: 065
  7. DOCETAXEL. [Suspect]
     Active Substance: DOCETAXEL
     Indication: BREAST CANCER
     Dosage: FOUR COURSES OF I.V. DOCETAXEL (100 MG/M 2 ) Q2W
     Route: 042
     Dates: start: 20120523, end: 20120523
  8. DOCETAXEL. [Suspect]
     Active Substance: DOCETAXEL
     Dosage: 190 MG,1X
     Route: 042
     Dates: start: 20120606, end: 20120606

REACTIONS (28)
  - Mechanical ventilation [Fatal]
  - Pneumothorax [Fatal]
  - Lung infiltration [Fatal]
  - C-reactive protein increased [Fatal]
  - Pyrexia [Fatal]
  - Respiratory tract infection [Fatal]
  - Interstitial lung disease [Fatal]
  - Endotracheal intubation [Fatal]
  - Blood pressure systolic decreased [Fatal]
  - Pneumonitis [Fatal]
  - Aspiration [Fatal]
  - Cough [Fatal]
  - Respiratory failure [Fatal]
  - Pneumopericardium [Fatal]
  - Palmar-plantar erythrodysaesthesia syndrome [Unknown]
  - Hypoxia [Fatal]
  - Fatigue [Fatal]
  - Pneumomediastinum [Fatal]
  - Hypercapnia [Fatal]
  - Dyspnoea [Fatal]
  - Oxygen saturation decreased [Fatal]
  - Pulmonary function test decreased [Fatal]
  - Tachycardia [Fatal]
  - Atypical pneumonia [Fatal]
  - Skin exfoliation [Unknown]
  - Respiratory distress [Fatal]
  - Haemothorax [Fatal]
  - Condition aggravated [Fatal]
